FAERS Safety Report 16750572 (Version 11)
Quarter: 2020Q4

REPORT INFORMATION
  Report Type: Spontaneous
  Country: US (occurrence: US)
  Receive Date: 20190828
  Receipt Date: 20201116
  Transmission Date: 20210113
  Serious: Yes (Hospitalization, Other)
  Sender: FDA-Public Use
  Company Number: US-PFIZER INC-2019370970

PATIENT
  Age: 73 Year
  Sex: Female
  Weight: 82 kg

DRUGS (25)
  1. MELATONIN [Concomitant]
     Active Substance: MELATONIN
     Dosage: UNK
  2. OMEPRAZOLE. [Concomitant]
     Active Substance: OMEPRAZOLE
     Dosage: 40 MG, DAILY [40MG Q DAY (EVERYDAY)]
  3. VENLAFAXINE XR [Concomitant]
     Active Substance: VENLAFAXINE HYDROCHLORIDE
     Dosage: 150 MG, DAILY [150MG XR Q DAY (EVERYDAY)]
  4. COLACE [Concomitant]
     Active Substance: DOCUSATE SODIUM
     Dosage: UNK
  5. LYRICA [Suspect]
     Active Substance: PREGABALIN
     Indication: SMALL FIBRE NEUROPATHY
     Dosage: 300 MG, DAILY (50 MG 6/DAY)
     Dates: start: 201806
  6. ALPRAZOLAM. [Concomitant]
     Active Substance: ALPRAZOLAM
     Dosage: 0.5 MG, AS NEEDED [0.5 MG TID (THREE TIMES A DAY) PRN (AS NEEDED)]
     Dates: start: 201906
  7. POTASSIUM CHLORIDE. [Concomitant]
     Active Substance: POTASSIUM CHLORIDE
     Dosage: 10 MEQ, UNK [10 MEQ ON DAYS SHE TAKES FUROSEMIDE]
  8. VIT D [Concomitant]
     Active Substance: VITAMIN D NOS
     Dosage: UNK, DAILY
  9. LYRICA [Suspect]
     Active Substance: PREGABALIN
     Indication: PRURITUS
     Dosage: 100 MG, 3X/DAY [TAKE 2 CAPSULES BY MOUTH 3 TIMES A DAY AS DIRECTED BY PHYSICIAN]
     Route: 048
     Dates: start: 2019
  10. FAMOTIDINE. [Concomitant]
     Active Substance: FAMOTIDINE
     Dosage: 40 MG, DAILY [40 MG Q DAY (EVERYDAY)]
  11. HYDROXYZINE [Concomitant]
     Active Substance: HYDROXYZINE HYDROCHLORIDE
     Dosage: 50 MG, 3X/DAY
  12. MAGNESIUM MALATE. [Concomitant]
     Active Substance: MAGNESIUM MALATE
     Dosage: UNK
  13. METFORMIN [Concomitant]
     Active Substance: METFORMIN HYDROCHLORIDE
     Dosage: 500 MG, DAILY [500 MG Q DAY (EVERYDAY)]
  14. ALBUTEROL. [Concomitant]
     Active Substance: ALBUTEROL
     Dosage: 2 DF, AS NEEDED ([ALBUTEROL INHALER 2 PUFFS Q (EVERY) 6 HOURS PRN (AS NEEDED)])
  15. LYSINE [Concomitant]
     Active Substance: LYSINE
     Dosage: 500 MG, DAILY [500MG Q DAY (EVERYDAY)]
  16. MELOXICAM. [Concomitant]
     Active Substance: MELOXICAM
     Dosage: 15 MG, DAILY [15MG Q DAY (EVERYDAY)]
  17. BENADRYL [Concomitant]
     Active Substance: DIPHENHYDRAMINE HYDROCHLORIDE
     Dosage: 150 MG, UNK
  18. CALCIUM [Concomitant]
     Active Substance: CALCIUM
     Dosage: UNK, DAILY
  19. FUROSEMIDE. [Concomitant]
     Active Substance: FUROSEMIDE
     Dosage: UNK, AS NEEDED [20-40MG Q DAY (EVERYDAY) PRN (AS NEEDED)]
  20. LISINOPRIL. [Concomitant]
     Active Substance: LISINOPRIL
     Dosage: 5 MG, DAILY [5MG Q DAY (EVERYDAY)]
  21. VALACYCLOVIR [Concomitant]
     Active Substance: VALACYCLOVIR HYDROCHLORIDE
     Dosage: 500 MG, DAILY
  22. FLOVENT [Concomitant]
     Active Substance: FLUTICASONE PROPIONATE
     Dosage: 110 MG, 2X/DAY (110 MG 1 PUFF BID)
  23. METOPROLOL SUCCINATE. [Concomitant]
     Active Substance: METOPROLOL SUCCINATE
     Dosage: 50 MG, DAILY [50 MG Q DAY (EVERYDAY)]
  24. OLANZAPINE. [Concomitant]
     Active Substance: OLANZAPINE
     Dosage: 5 MG, 1X/DAY [5 MG AT HS (AT BEDTIME)]
     Dates: start: 201911
  25. TEMAZEPAM. [Concomitant]
     Active Substance: TEMAZEPAM
     Dosage: 15 MG, 1X/DAY [15 MG AT HS (AT BEDTIME)]
     Dates: start: 201906

REACTIONS (10)
  - Skin abrasion [Recovering/Resolving]
  - Asthma [Not Recovered/Not Resolved]
  - Scar [Not Recovered/Not Resolved]
  - Cellulitis [Recovering/Resolving]
  - Malaise [Unknown]
  - Memory impairment [Not Recovered/Not Resolved]
  - Hypertension [Recovering/Resolving]
  - Illness [Unknown]
  - Pruritus [Recovering/Resolving]
  - Ulcer [Not Recovered/Not Resolved]

NARRATIVE: CASE EVENT DATE: 20190909
